FAERS Safety Report 7316554-1 (Version None)
Quarter: 2011Q1

REPORT INFORMATION
  Report Type: 
  Country: None (occurrence: None)
  Receive Date: 20110226
  Receipt Date: 20100712
  Transmission Date: 20110831
  Serious: No
  Sender: FDA-Public Use
  Company Number: US-ALLERGAN-1009035US

PATIENT
  Age: 73 Year
  Sex: Female

DRUGS (1)
  1. BOTOXA? [Suspect]
     Indication: TORTICOLLIS
     Dosage: 100 UNITS, SINGLE
     Route: 030
     Dates: start: 20100608, end: 20100608

REACTIONS (3)
  - HEADACHE [None]
  - DYSPHAGIA [None]
  - MASTICATION DISORDER [None]
